FAERS Safety Report 18322214 (Version 1)
Quarter: 2020Q3

REPORT INFORMATION
  Report Type: Spontaneous
  Country: US (occurrence: US)
  Receive Date: 20200928
  Receipt Date: 20200928
  Transmission Date: 20201103
  Serious: No
  Sender: FDA-Public Use
  Company Number: None

PATIENT
  Age: 36 Year
  Sex: Male
  Weight: 77.85 kg

DRUGS (5)
  1. ATOMOXETINE 40MG [Concomitant]
     Active Substance: ATOMOXETINE
     Dates: start: 20200821
  2. MAVYRET [Suspect]
     Active Substance: GLECAPREVIR\PIBRENTASVIR
     Indication: HEPATITIS C
     Route: 048
     Dates: start: 20200911, end: 20200915
  3. GABAPENTIN 900MG [Concomitant]
     Dates: start: 20200821
  4. PROPRANOLOL 10MG [Concomitant]
     Active Substance: PROPRANOLOL HYDROCHLORIDE
     Dates: start: 20200821
  5. RISPERIDONE 6MG [Concomitant]
     Active Substance: RISPERIDONE
     Dates: start: 20200908

REACTIONS (4)
  - Therapy cessation [None]
  - Alanine aminotransferase increased [None]
  - Aspartate aminotransferase increased [None]
  - Blood alkaline phosphatase increased [None]

NARRATIVE: CASE EVENT DATE: 20200915
